FAERS Safety Report 18307086 (Version 2)
Quarter: 2020Q4

REPORT INFORMATION
  Report Type: Report from Study
  Country: None (occurrence: US)
  Receive Date: 20200924
  Receipt Date: 20201102
  Transmission Date: 20210113
  Serious: No
  Sender: FDA-Public Use
  Company Number: US-BIOVITRUM-2020US5086

PATIENT
  Age: 44 Year
  Sex: Male

DRUGS (3)
  1. KINERET [Suspect]
     Active Substance: ANAKINRA
     Indication: PRODUCT USED FOR UNKNOWN INDICATION
     Route: 058
     Dates: start: 20200915
  2. PREDNISONE. [Concomitant]
     Active Substance: PREDNISONE
  3. COLCHICINE. [Concomitant]
     Active Substance: COLCHICINE

REACTIONS (5)
  - Injection site pain [Unknown]
  - Injection site rash [Unknown]
  - Diarrhoea [Unknown]
  - Abdominal pain upper [Unknown]
  - Injection site mass [Unknown]

NARRATIVE: CASE EVENT DATE: 202009
